FAERS Safety Report 17243994 (Version 5)
Quarter: 2020Q3

REPORT INFORMATION
  Report Type: Report from Study
  Country: GB (occurrence: GB)
  Receive Date: 20200107
  Receipt Date: 20200922
  Transmission Date: 20201102
  Serious: Yes (Hospitalization, Other)
  Sender: FDA-Public Use
  Company Number: GB-JNJFOC-20200106184

PATIENT
  Age: 47 Year
  Sex: Female
  Weight: 72 kg

DRUGS (10)
  1. AZELASTINE. [Concomitant]
     Active Substance: AZELASTINE HYDROCHLORIDE
     Dosage: ONE SPRAY TO BE USED IN EACH NOSTRIL TWICE A DAY
  2. OESTROGEN [Concomitant]
  3. STELARA [Suspect]
     Active Substance: USTEKINUMAB
     Indication: CROHN^S DISEASE
     Route: 058
  4. AZATHIOPRINE. [Suspect]
     Active Substance: AZATHIOPRINE
     Indication: PRODUCT USED FOR UNKNOWN INDICATION
     Dates: start: 20191205
  5. PROGESTERON [Concomitant]
     Active Substance: PROGESTERONE
  6. BUDESONIDE. [Concomitant]
     Active Substance: BUDESONIDE
     Route: 045
  7. STELARA [Suspect]
     Active Substance: USTEKINUMAB
     Dosage: 45MG/ 0.5 ML
     Route: 058
     Dates: start: 20191205
  8. INFLUENZA VACCINE [Concomitant]
     Active Substance: INFLUENZA VIRUS VACCINE
     Dates: start: 20191104
  9. RIZATRIPTAN. [Concomitant]
     Active Substance: RIZATRIPTAN
     Dosage: TAKE ONE DURING ONSET AND REPEAT ONE DOSE IF REQUIRED
  10. FLUTICASONE PROPRIONATE [Concomitant]
     Active Substance: FLUTICASONE PROPIONATE

REACTIONS (2)
  - Pancreatitis [Unknown]
  - Otitis externa [Recovered/Resolved]
